FAERS Safety Report 11752351 (Version 1)
Quarter: 2015Q4

REPORT INFORMATION
  Report Type: Spontaneous
  Country: IT (occurrence: IT)
  Receive Date: 20151118
  Receipt Date: 20151118
  Transmission Date: 20160304
  Serious: Yes (Hospitalization, Other)
  Sender: FDA-Public Use
  Company Number: IT-GILEAD-2015-0181763

PATIENT
  Age: 44 Year
  Sex: Female

DRUGS (3)
  1. IDELALISIB [Suspect]
     Active Substance: IDELALISIB
     Dosage: 150 MG, BID
     Route: 048
     Dates: start: 2014, end: 201409
  2. IDELALISIB [Suspect]
     Active Substance: IDELALISIB
     Indication: B-CELL LYMPHOMA
     Dosage: 150 MG, BID
     Route: 048
     Dates: start: 201209, end: 201405
  3. IDELALISIB [Suspect]
     Active Substance: IDELALISIB
     Dosage: UNK UNKNOWN, UNK
     Route: 048
     Dates: start: 201501, end: 201505

REACTIONS (10)
  - Pancytopenia [Unknown]
  - Cough [Unknown]
  - Herpes zoster [Unknown]
  - Lung infiltration [Unknown]
  - Intestinal obstruction [Unknown]
  - Respiratory distress [Unknown]
  - Pyrexia [Unknown]
  - Diarrhoea [Recovered/Resolved]
  - Pneumonitis [Recovered/Resolved]
  - Pyrexia [Unknown]

NARRATIVE: CASE EVENT DATE: 201405
